FAERS Safety Report 10184317 (Version 2)
Quarter: 2014Q2

REPORT INFORMATION
  Report Type: Spontaneous
  Country: ZA (occurrence: ZA)
  Receive Date: 20140520
  Receipt Date: 20140528
  Transmission Date: 20141212
  Serious: Yes (Death)
  Sender: FDA-Public Use
  Company Number: ZA-MERCK-1405ZAF009197

PATIENT
  Age: 69 Year
  Sex: Male

DRUGS (1)
  1. CANCIDAS 50MG [Suspect]
     Dosage: UNK
     Dates: start: 20140509

REACTIONS (1)
  - Sepsis [Fatal]
